FAERS Safety Report 9115573 (Version 1)
Quarter: 2013Q1

REPORT INFORMATION
  Report Type: Spontaneous
  Country: US (occurrence: None)
  Receive Date: 20130128
  Receipt Date: 20130128
  Transmission Date: 20140127
  Serious: Yes (Death, Other)
  Sender: FDA-Public Use
  Company Number: US-JNJFOC-20130112702

PATIENT
  Sex: 0

DRUGS (3)
  1. DECITABINE [Suspect]
     Indication: MYELODYSPLASTIC SYNDROME
     Route: 042
  2. ROMIPLOSTIM [Suspect]
     Indication: MYELODYSPLASTIC SYNDROME
     Route: 058
  3. PLACEBO [Suspect]
     Indication: MYELODYSPLASTIC SYNDROME
     Route: 058

REACTIONS (7)
  - Device related sepsis [None]
  - Convulsion [None]
  - Deep vein thrombosis [None]
  - Enterobacter infection [None]
  - Neutropenic sepsis [None]
  - Thrombocytopenia [None]
  - Haemorrhage intracranial [None]
